FAERS Safety Report 12141257 (Version 4)
Quarter: 2016Q3

REPORT INFORMATION
  Report Type: Spontaneous
  Country: BR (occurrence: BR)
  Receive Date: 20160303
  Receipt Date: 20160714
  Transmission Date: 20161109
  Serious: Yes (Hospitalization)
  Sender: FDA-Public Use
  Company Number: BR-PFIZER INC-2016118636

PATIENT
  Age: 68 Year
  Sex: Male

DRUGS (4)
  1. ALENIA /01479302/ [Concomitant]
     Dosage: UNK, 2X/DAY
  2. PANTOPRAZOLE [Concomitant]
     Active Substance: PANTOPRAZOLE SODIUM
     Indication: DIVERTICULITIS
     Dosage: UNK
  3. SUTENT [Suspect]
     Active Substance: SUNITINIB MALATE
     Indication: METASTATIC RENAL CELL CARCINOMA
     Dosage: 50 MG, CYCLE 2X1, (CONTINUOUS USE IN ALTERNATED DAYS) (ONCE DAILY)
     Route: 048
     Dates: start: 20150826
  4. LASIX [Concomitant]
     Active Substance: FUROSEMIDE
     Dosage: UNK

REACTIONS (4)
  - Thyroid disorder [Unknown]
  - Dyspnoea [Unknown]
  - Herpes virus infection [Not Recovered/Not Resolved]
  - Weight decreased [Unknown]
